FAERS Safety Report 6756756-6 (Version None)
Quarter: 2010Q2

REPORT INFORMATION
  Report Type: 
  Country: None (occurrence: None)
  Receive Date: 20100603
  Receipt Date: 20100603
  Transmission Date: 20101027
  Serious: Yes (Hospitalization)
  Sender: FDA-Public Use
  Company Number: None

PATIENT
  Sex: Male
  Weight: 96.6 kg

DRUGS (2)
  1. CASODEX [Suspect]
     Dosage: 650 MG
  2. LEUPROLIDE ACETATE [Suspect]
     Dosage: 45 MG

REACTIONS (3)
  - CEREBRAL INFARCTION [None]
  - CORONARY ARTERY DISEASE [None]
  - CORONARY ARTERY OCCLUSION [None]
